FAERS Safety Report 6316679-3 (Version None)
Quarter: 2009Q3

REPORT INFORMATION
  Report Type: 
  Country: None (occurrence: None)
  Receive Date: 20090820
  Receipt Date: 20090811
  Transmission Date: 20100115
  Serious: Yes (Hospitalization, Other)
  Sender: FDA-Public Use
  Company Number: US-MERCK-0705USA04135

PATIENT
  Age: 66 Year
  Sex: Female
  Weight: 56 kg

DRUGS (6)
  1. FOSAMAX [Suspect]
     Indication: OSTEOPOROSIS
     Route: 048
     Dates: start: 20040901, end: 20060501
  2. FOSAMAX [Suspect]
     Route: 048
     Dates: start: 20020701
  3. LIPITOR [Concomitant]
     Indication: BLOOD CHOLESTEROL INCREASED
     Route: 065
     Dates: start: 19930101, end: 20070101
  4. PAXIL [Concomitant]
     Indication: DEPRESSION
     Route: 065
     Dates: start: 19940101, end: 20070101
  5. ADVIL [Concomitant]
     Indication: BACK PAIN
     Route: 065
     Dates: start: 19920101, end: 20070101
  6. AMBIEN [Concomitant]
     Indication: INSOMNIA
     Route: 065
     Dates: start: 19950101, end: 20070101

REACTIONS (29)
  - ABDOMINAL PAIN UPPER [None]
  - ADVERSE DRUG REACTION [None]
  - CARDIAC DISORDER [None]
  - CYSTITIS [None]
  - DENTAL CARIES [None]
  - DIARRHOEA [None]
  - DISEASE RECURRENCE [None]
  - DRUG INEFFECTIVE [None]
  - EPICONDYLITIS [None]
  - FALL [None]
  - FRACTURE NONUNION [None]
  - GASTROINTESTINAL INFECTION [None]
  - GINGIVAL INFECTION [None]
  - HUMERUS FRACTURE [None]
  - INJURY [None]
  - JOINT INJURY [None]
  - LOOSE TOOTH [None]
  - MALAISE [None]
  - MEDICAL DEVICE COMPLICATION [None]
  - NEPHROLITHIASIS [None]
  - PAIN [None]
  - PALPITATIONS [None]
  - PSEUDOMEMBRANOUS COLITIS [None]
  - RESORPTION BONE INCREASED [None]
  - RESTLESS LEGS SYNDROME [None]
  - TOOTH EXTRACTION [None]
  - TOOTH FRACTURE [None]
  - TOOTH INFECTION [None]
  - TOOTH LOSS [None]
